FAERS Safety Report 5368662-2 (Version None)
Quarter: 2007Q2

REPORT INFORMATION
  Report Type: 
  Country: None (occurrence: None)
  Receive Date: 20070625
  Receipt Date: 20070307
  Transmission Date: 20071010
  Serious: No
  Sender: FDA-Public Use
  Company Number: US-BRISTOL-MYERS SQUIBB COMPANY-13587241

PATIENT
  Age: 32 Year
  Sex: Female
  Weight: 93 kg

DRUGS (8)
  1. ORENCIA [Suspect]
     Indication: RHEUMATOID ARTHRITIS
     Route: 042
     Dates: start: 20061031
  2. PREDNISONE TAB [Concomitant]
  3. DARVOCET [Concomitant]
  4. SOMA [Concomitant]
  5. CITRACAL [Concomitant]
  6. BIOTIN [Concomitant]
  7. PEPCID [Concomitant]
  8. BENADRYL [Concomitant]
     Route: 042

REACTIONS (2)
  - PRURITUS [None]
  - VISION BLURRED [None]
